FAERS Safety Report 4676558-4 (Version None)
Quarter: 2005Q2

REPORT INFORMATION
  Report Type: 
  Country: None (occurrence: None)
  Receive Date: 20050526
  Receipt Date: 20050520
  Transmission Date: 20051028
  Serious: Yes (Death)
  Sender: FDA-Public Use
  Company Number: 05-05-0935

PATIENT
  Age: 60 Year
  Sex: Female

DRUGS (2)
  1. CLOZAPINE [Suspect]
     Indication: SCHIZOPHRENIA
     Dosage: 300-700MG QD ORAL
     Route: 048
     Dates: start: 20020701, end: 20050501
  2. OXYGEN [Concomitant]

REACTIONS (2)
  - COLLAPSE OF LUNG [None]
  - DIFFICULT TO WEAN FROM VENTILATOR [None]
